FAERS Safety Report 7469386-8 (Version None)
Quarter: 2011Q2

REPORT INFORMATION
  Report Type: 
  Country: None (occurrence: None)
  Receive Date: 20110506
  Receipt Date: 20110506
  Transmission Date: 20111010
  Serious: Yes (Disabling)
  Sender: FDA-Public Use
  Company Number: None

PATIENT
  Age: 50 Year
  Sex: Female
  Weight: 79.3795 kg

DRUGS (2)
  1. BUPROPION HCL [Suspect]
  2. WELLBUTRIN [Suspect]
     Indication: DEPRESSION
     Dosage: 1 PILL DAILY
     Dates: start: 20100604, end: 20110422

REACTIONS (1)
  - TINNITUS [None]
